FAERS Safety Report 9007257 (Version 2)
Quarter: 2013Q1

REPORT INFORMATION
  Report Type: Spontaneous
  Country: US (occurrence: US)
  Receive Date: 20130110
  Receipt Date: 20130321
  Transmission Date: 20140127
  Serious: Yes (Death)
  Sender: FDA-Public Use
  Company Number: US-PFIZER INC-2013004531

PATIENT
  Age: 53 Year
  Sex: Male

DRUGS (6)
  1. ALPRAZOLAM [Suspect]
     Dosage: UNK
     Route: 065
  2. DEXTROMETHORPHAN HBR [Suspect]
     Dosage: UNK
     Route: 065
  3. FLUOXETINE HYDROCHLORIDE [Suspect]
     Dosage: UNK
     Route: 065
  4. HEROIN [Suspect]
     Dosage: UNK
     Route: 065
  5. CODEINE [Suspect]
     Dosage: UNK
     Route: 065
  6. OLANZAPINE [Suspect]
     Dosage: UNK
     Route: 065

REACTIONS (4)
  - Death [Fatal]
  - Cardiac arrest [Fatal]
  - Respiratory arrest [Fatal]
  - Intentional drug misuse [Fatal]
